FAERS Safety Report 11177999 (Version 1)
Quarter: 2015Q2

REPORT INFORMATION
  Report Type: Spontaneous
  Country: US (occurrence: US)
  Receive Date: 20150610
  Receipt Date: 20150610
  Transmission Date: 20150821
  Serious: No
  Sender: FDA-Public Use
  Company Number: US-HORIZON-VIM-0017-2015

PATIENT
  Age: 47 Year
  Sex: Male
  Weight: 104 kg

DRUGS (2)
  1. BACLOFEN. [Concomitant]
     Active Substance: BACLOFEN
     Indication: ARTHRITIS
  2. VIMOVO [Suspect]
     Active Substance: ESOMEPRAZOLE MAGNESIUM\NAPROXEN
     Indication: INTERVERTEBRAL DISC DISORDER
     Dates: start: 20150127, end: 20150211

REACTIONS (2)
  - Haematochezia [Recovered/Resolved]
  - Gastrointestinal haemorrhage [Recovered/Resolved]

NARRATIVE: CASE EVENT DATE: 20150210
